FAERS Safety Report 7822655-1 (Version None)
Quarter: 2011Q4

REPORT INFORMATION
  Report Type: 
  Country: None (occurrence: None)
  Receive Date: 20111018
  Receipt Date: 20111006
  Transmission Date: 20120403
  Serious: No
  Sender: FDA-Public Use
  Company Number: US-B.I. PHARMACEUTICALS,INC./RIDGEFIELD-2011-BP-23672BP

PATIENT
  Age: 83 Year
  Sex: Female

DRUGS (17)
  1. SINGULAIR [Concomitant]
     Indication: HYPERSENSITIVITY
     Route: 048
  2. SPIRONOLACTONE [Concomitant]
     Indication: ATRIAL FIBRILLATION
     Route: 048
  3. CARVEDILOL [Concomitant]
     Indication: ATRIAL FIBRILLATION
     Route: 048
  4. TESSALON [Concomitant]
  5. ZETIA [Concomitant]
     Indication: BLOOD CHOLESTEROL INCREASED
     Route: 048
  6. SPIRIVA [Suspect]
     Indication: ASTHMA
     Dosage: 18 MCG
     Route: 055
     Dates: start: 20110929
  7. AZOR [Concomitant]
     Indication: HYPERTENSION
     Route: 048
  8. SKELAXIN [Concomitant]
     Route: 048
  9. COQ10 [Concomitant]
     Indication: ROUTINE HEALTH MAINTENANCE
     Route: 048
  10. AMBIEN [Concomitant]
     Dosage: 2.5 MG
     Route: 048
  11. ALLEGRA [Concomitant]
     Indication: HYPERSENSITIVITY
     Route: 048
  12. FOSAMAX [Concomitant]
     Route: 048
  13. OMEPRAZOLE [Concomitant]
     Indication: GASTROOESOPHAGEAL REFLUX DISEASE
     Route: 048
  14. ATIVAN [Concomitant]
     Dosage: 0.5 MG
     Route: 048
  15. PROVENTIL [Concomitant]
     Indication: ASTHMA
     Route: 055
  16. CITRACAL [Concomitant]
     Indication: ROUTINE HEALTH MAINTENANCE
     Route: 048
  17. PRADAXA [Concomitant]
     Indication: ATRIAL FIBRILLATION
     Route: 048
     Dates: start: 20110301

REACTIONS (1)
  - CHEST X-RAY ABNORMAL [None]
